FAERS Safety Report 8234539-8 (Version None)
Quarter: 2012Q1

REPORT INFORMATION
  Report Type: 
  Country: None (occurrence: None)
  Receive Date: 20120326
  Receipt Date: 20120313
  Transmission Date: 20120608
  Serious: Yes (Hospitalization)
  Sender: FDA-Public Use
  Company Number: PL-ROCHE-1050037

PATIENT
  Sex: Male
  Weight: 70 kg

DRUGS (3)
  1. AVASTIN [Suspect]
     Indication: RENAL CANCER METASTATIC
     Dosage: MOST RECENT DOSE BEFORE EVENT: 20/FEB/2012
     Route: 042
     Dates: start: 20090615
  2. ROFERON-A [Suspect]
     Indication: RENAL CANCER METASTATIC
     Dosage: MOST RECENT DOSE BEFORE EVENT: 24/FEB/2012
     Route: 058
     Dates: start: 20090615
  3. LOSARTAN POTASSIUM AND HYDROCHLOROTHIAZIDE [Concomitant]
     Dosage: DRUG NAME: LOSARTAN POTASSIUM W/HYDROCHLOROTHIAZIDE
     Dates: start: 20110105

REACTIONS (1)
  - BRONCHITIS [None]
